FAERS Safety Report 14785301 (Version 1)
Quarter: 2018Q2

REPORT INFORMATION
  Report Type: Spontaneous
  Country: JP (occurrence: JP)
  Receive Date: 20180420
  Receipt Date: 20180420
  Transmission Date: 20180711
  Serious: Yes (Hospitalization)
  Sender: FDA-Public Use
  Company Number: JP-ASTRAZENECA-2018SE48354

PATIENT
  Age: 82 Year
  Sex: Male

DRUGS (5)
  1. NEXIUM [Suspect]
     Active Substance: ESOMEPRAZOLE MAGNESIUM
     Dosage: 20.0MG UNKNOWN
     Route: 048
  2. BAYASPIRIN [Concomitant]
     Active Substance: ASPIRIN
     Dosage: DOSE UNKNOWN
     Route: 048
  3. AVOLVE [Concomitant]
     Active Substance: DUTASTERIDE
     Dosage: DOSE UNKNOWN
     Route: 048
  4. EFIENT [Concomitant]
     Active Substance: PRASUGREL HYDROCHLORIDE
     Dosage: DOSE UNKNOWN
     Route: 048
  5. CRESTOR [Suspect]
     Active Substance: ROSUVASTATIN CALCIUM
     Dosage: 2.5MG UNKNOWN
     Route: 048

REACTIONS (4)
  - Acute myocardial infarction [Unknown]
  - Benign prostatic hyperplasia [Unknown]
  - Product physical issue [Unknown]
  - Product taste abnormal [Unknown]
